FAERS Safety Report 9465070 (Version 3)
Quarter: 2013Q4

REPORT INFORMATION
  Report Type: Spontaneous
  Country: US (occurrence: US)
  Receive Date: 20130819
  Receipt Date: 20131028
  Transmission Date: 20140711
  Serious: No
  Sender: FDA-Public Use
  Company Number: US-PFIZER INC-2013237296

PATIENT
  Age: 40 Year
  Sex: Female

DRUGS (6)
  1. PREMPRO [Suspect]
     Dosage: 0.3/1.5MG
     Route: 048
     Dates: start: 20130507, end: 201308
  2. PREMPHASE [Suspect]
     Dosage: UNK
  3. ETODOLAC [Concomitant]
     Dosage: 1000 MG (500 MG, 2X/DAY), AS NEEDED
     Dates: start: 20130208, end: 20130714
  4. FLUCONAZOLE [Concomitant]
     Dosage: 150 MG, 1 NON REPEAT 1 WEEK, AS NEEDED
     Dates: start: 20130725, end: 20130725
  5. CYCLOBENZAPRINE [Concomitant]
     Dosage: 10 MG, 1 NON REPEAT 3XDAY (AS NEEDED)
     Dates: start: 20130208, end: 20130726
  6. ALPRAZOLAM [Concomitant]
     Dosage: 0.5 MG, 1-2 3X/DAY (AS NEEDED)
     Route: 048
     Dates: start: 20130725

REACTIONS (1)
  - Lactose intolerance [Unknown]
